FAERS Safety Report 25653156 (Version 1)
Quarter: 2025Q3

REPORT INFORMATION
  Report Type: Report from Study
  Country: US (occurrence: US)
  Receive Date: 20250807
  Receipt Date: 20250807
  Transmission Date: 20251020
  Serious: Yes (Hospitalization)
  Sender: GILEAD
  Company Number: US-GILEAD-2025-0723211

PATIENT
  Age: 70 Year
  Sex: Male

DRUGS (7)
  1. AZTREONAM LYSINE [Suspect]
     Active Substance: AZTREONAM LYSINE
     Indication: Cystic fibrosis
     Dosage: INHALE 1 VIAL VIA NEBULIZER THREE TIMES DAILY FOR 28 DAYS ON, THEN 28 DAYS OFF
     Route: 055
     Dates: start: 20250611
  2. AZITHROMYCIN [Concomitant]
     Active Substance: AZITHROMYCIN
  3. SODIUM CHLORIDE [Concomitant]
     Active Substance: SODIUM CHLORIDE
  4. IPRATROPIUM [Concomitant]
     Active Substance: IPRATROPIUM
  5. PREDNISOLONE [Concomitant]
     Active Substance: PREDNISOLONE
  6. PREDNISONE [Concomitant]
     Active Substance: PREDNISONE
  7. SIMETHICONE (DIMETHICONE) [Concomitant]
     Active Substance: DIMETHICONE

REACTIONS (3)
  - Dyspnoea [Not Recovered/Not Resolved]
  - Flatulence [Not Recovered/Not Resolved]
  - Product dose omission issue [Not Recovered/Not Resolved]

NARRATIVE: CASE EVENT DATE: 20250701
